FAERS Safety Report 8244850-2 (Version None)
Quarter: 2012Q1

REPORT INFORMATION
  Report Type: 
  Country: None (occurrence: None)
  Receive Date: 20120329
  Receipt Date: 20110720
  Transmission Date: 20120608
  Serious: No
  Sender: FDA-Public Use
  Company Number: US-MYLANLABS-2011S1012391

PATIENT
  Age: 57 Year
  Sex: Male

DRUGS (6)
  1. EQUETRO [Concomitant]
     Indication: AFFECTIVE DISORDER
     Route: 048
     Dates: start: 20110301
  2. FENTANYL-100 [Suspect]
     Indication: NECK PAIN
     Dosage: QOD
     Route: 062
  3. FENTANYL-100 [Suspect]
     Dosage: QOD
     Route: 062
  4. FENTANYL-100 [Suspect]
     Indication: PAIN
     Dosage: QOD
     Route: 062
  5. OXYCODONE HCL [Concomitant]
     Indication: BREAKTHROUGH PAIN
     Route: 048
  6. FENTANYL-100 [Suspect]
     Indication: PAIN IN EXTREMITY
     Dosage: QOD
     Route: 062

REACTIONS (7)
  - APPLICATION SITE PRURITUS [None]
  - PAIN [None]
  - APPLICATION SITE RASH [None]
  - DRUG INEFFECTIVE [None]
  - APPLICATION SITE ODOUR [None]
  - APPLICATION SITE ERYTHEMA [None]
  - LACERATION [None]
